FAERS Safety Report 7718073-7 (Version None)
Quarter: 2011Q3

REPORT INFORMATION
  Report Type: 
  Country: None (occurrence: None)
  Receive Date: 20110830
  Receipt Date: 20110823
  Transmission Date: 20111222
  Serious: Yes (Death)
  Sender: FDA-Public Use
  Company Number: JP-JNJFOC-20110410212

PATIENT
  Sex: Female

DRUGS (20)
  1. UNASYN [Concomitant]
     Indication: PYREXIA
     Route: 065
     Dates: start: 20101110, end: 20101122
  2. ENTOMOL [Concomitant]
     Indication: DIARRHOEA
     Route: 048
     Dates: start: 20101120
  3. CEFTERAM PIVOXIL [Concomitant]
     Dosage: THREE 100 MG, TOOK ONLY ONCE
     Route: 048
     Dates: start: 20101105
  4. ALBUMIN (HUMAN) [Concomitant]
     Indication: OEDEMA
     Route: 065
     Dates: start: 20101117, end: 20101121
  5. ITRACONAZOLE [Suspect]
     Indication: OESOPHAGEAL CANDIDIASIS
     Route: 048
     Dates: start: 20101119, end: 20101126
  6. CLINDAMYCIN HCL [Concomitant]
     Indication: PYREXIA
     Route: 048
     Dates: start: 20101111, end: 20101117
  7. LOXONIN [Concomitant]
     Route: 065
     Dates: start: 20101111, end: 20101124
  8. PREDNISOLONE [Concomitant]
     Route: 065
     Dates: start: 20101119
  9. ALBUMIN (HUMAN) [Concomitant]
     Indication: HYPOALBUMINAEMIA
     Route: 065
     Dates: start: 20101117, end: 20101121
  10. FUROSEMIDE [Concomitant]
     Indication: HYPOALBUMINAEMIA
     Route: 065
     Dates: start: 20101117, end: 20101121
  11. ITRACONAZOLE [Suspect]
     Indication: OESOPHAGEAL CANDIDIASIS
     Route: 048
     Dates: start: 20101119, end: 20101126
  12. MINOCYCLINE HCL [Concomitant]
     Indication: PYREXIA
     Route: 048
     Dates: start: 20101117, end: 20101122
  13. ALENDRONATE SODIUM [Concomitant]
     Indication: OSTEOPOROSIS PROPHYLAXIS
     Route: 048
     Dates: start: 20101119
  14. FUROSEMIDE [Concomitant]
     Indication: OEDEMA
     Route: 065
     Dates: start: 20101117, end: 20101121
  15. CEFOTIAM HYDROCHLORIDE [Concomitant]
     Dosage: FOUR 5 MG
     Route: 065
     Dates: start: 20101106
  16. VANCOMYCIN HYCHLORIDE [Concomitant]
     Indication: DIARRHOEA
     Route: 048
     Dates: start: 20101122
  17. FLOMOX [Concomitant]
     Indication: BIOPSY MUSCLE
     Route: 048
     Dates: start: 20101122, end: 20101124
  18. SOLU-MEDROL [Concomitant]
     Route: 065
     Dates: start: 20101118, end: 20101120
  19. LANSOPRAZOLE [Concomitant]
     Route: 065
     Dates: start: 20101118
  20. PREDNISOLONE [Concomitant]
     Dosage: FOUR 5 MG, TOOK ONLY ONCE
     Route: 048
     Dates: start: 20101105

REACTIONS (5)
  - PULMONARY EMBOLISM [None]
  - CARDIAC FAILURE CONGESTIVE [None]
  - PULMONARY INFARCTION [None]
  - CARDIO-RESPIRATORY ARREST [None]
  - DIZZINESS [None]
